FAERS Safety Report 5388584-0 (Version None)
Quarter: 2007Q3

REPORT INFORMATION
  Report Type: 
  Country: None (occurrence: None)
  Receive Date: 20070716
  Receipt Date: 20070712
  Transmission Date: 20080115
  Serious: Yes (Hospitalization)
  Sender: FDA-Public Use
  Company Number: FR-ASTRAZENECA-2007CG01059

PATIENT
  Age: 21270 Day
  Sex: Male
  Weight: 80 kg

DRUGS (8)
  1. NEXIUM [Suspect]
     Route: 048
     Dates: start: 20070101, end: 20070501
  2. DESLORATADINE [Suspect]
     Route: 048
     Dates: end: 20070511
  3. ALLERGODIL [Suspect]
     Route: 045
     Dates: start: 20070401, end: 20070511
  4. CHONDROSULF [Suspect]
     Indication: OSTEOARTHRITIS
     Route: 048
     Dates: end: 20070511
  5. SOLACY [Suspect]
     Indication: RHINITIS
     Route: 048
     Dates: end: 20070511
  6. INDAPAMIDE [Suspect]
     Route: 048
     Dates: start: 20060815, end: 20070511
  7. FLECAINIDE ACETATE [Concomitant]
     Indication: ATRIAL FIBRILLATION
     Dates: start: 20040101
  8. ACTISOUFRE [Concomitant]

REACTIONS (3)
  - ANGIOIMMUNOBLASTIC T-CELL LYMPHOMA [None]
  - PURPURA [None]
  - THROMBOCYTOPENIA [None]
